FAERS Safety Report 4421885-9 (Version None)
Quarter: 2004Q3

REPORT INFORMATION
  Report Type: 
  Country: None (occurrence: None)
  Receive Date: 20040805
  Receipt Date: 20040805
  Transmission Date: 20050211
  Serious: Yes (Other)
  Sender: FDA-Public Use
  Company Number: None

PATIENT
  Age: 53 Year
  Sex: Male
  Weight: 70.1 kg

DRUGS (6)
  1. OMEPRAZOLE [Suspect]
  2. RABEPRAZOLE NA [Concomitant]
  3. ZINC SULFATE [Concomitant]
  4. DRESSING, BIAPINE [Concomitant]
  5. SENNOSIDES [Concomitant]
  6. OMEPRAZOLE [Concomitant]

REACTIONS (1)
  - PRURITUS [None]
